FAERS Safety Report 15330319 (Version 1)
Quarter: 2018Q3

REPORT INFORMATION
  Report Type: Spontaneous
  Country: US (occurrence: US)
  Receive Date: 20180829
  Receipt Date: 20180829
  Transmission Date: 20181010
  Serious: Yes (Other)
  Sender: FDA-Public Use
  Company Number: US-SA-2018SA237066

PATIENT
  Age: 87 Year
  Sex: Female

DRUGS (1)
  1. MULTAQ [Suspect]
     Active Substance: DRONEDARONE
     Indication: ATRIAL FIBRILLATION
     Dosage: 400 MG, BID
     Route: 065
     Dates: start: 201807

REACTIONS (4)
  - Faeces soft [Not Recovered/Not Resolved]
  - Anal incontinence [Not Recovered/Not Resolved]
  - Sinus node dysfunction [Unknown]
  - Atrial fibrillation [Unknown]
